FAERS Safety Report 8344776-X (Version None)
Quarter: 2012Q2

REPORT INFORMATION
  Report Type: 
  Country: None (occurrence: None)
  Receive Date: 20120508
  Receipt Date: 20120504
  Transmission Date: 20120825
  Serious: Yes (Other)
  Sender: FDA-Public Use
  Company Number: IT-BAYER-2012-044066

PATIENT
  Age: 35 Year
  Sex: Female

DRUGS (1)
  1. ASPIRIN [Suspect]
     Indication: RENAL PAIN
     Dosage: 500 MG, ONCE
     Route: 048
     Dates: start: 20120211, end: 20120211

REACTIONS (2)
  - SYNCOPE [None]
  - URTICARIA [None]
